FAERS Safety Report 9787705 (Version 6)
Quarter: 2014Q1

REPORT INFORMATION
  Report Type: Spontaneous
  Country: DE (occurrence: DE)
  Receive Date: 20131230
  Receipt Date: 20140224
  Transmission Date: 20141002
  Serious: Yes (Hospitalization, Other)
  Sender: FDA-Public Use
  Company Number: DE-JNJFOC-20131214857

PATIENT
  Age: 80 Year
  Sex: Female
  Weight: 68 kg

DRUGS (6)
  1. XARELTO [Suspect]
     Indication: EMBOLISM VENOUS
     Route: 048
     Dates: start: 20131118, end: 20131218
  2. XARELTO [Suspect]
     Indication: PULMONARY EMBOLISM
     Route: 048
     Dates: start: 20131118, end: 20131218
  3. OMEPRAZOLE [Concomitant]
     Route: 065
  4. ALLOPURINOL [Concomitant]
     Route: 065
  5. CANDESARTAN [Concomitant]
     Route: 065
  6. SINA-12X [Concomitant]
     Route: 065

REACTIONS (9)
  - Glomerular filtration rate decreased [Unknown]
  - Occult blood positive [Unknown]
  - Cardiovascular disorder [Unknown]
  - Faeces discoloured [Unknown]
  - Renal failure acute [Unknown]
  - Haemorrhagic anaemia [Unknown]
  - Lower gastrointestinal haemorrhage [Unknown]
  - Haemoglobin decreased [Unknown]
  - Abdominal discomfort [Unknown]
